FAERS Safety Report 16101134 (Version 2)
Quarter: 2019Q2

REPORT INFORMATION
  Report Type: Report from Study
  Country: US (occurrence: US)
  Receive Date: 20190321
  Receipt Date: 20190411
  Transmission Date: 20190711
  Serious: Yes (Hospitalization)
  Sender: FDA-Public Use
  Company Number: US-ACTELION-A-NJ2019-187860

PATIENT
  Age: 70 Year
  Sex: Female
  Weight: 55.78 kg

DRUGS (8)
  1. LETAIRIS [Concomitant]
     Active Substance: AMBRISENTAN
  2. AMIODARONE [Concomitant]
     Active Substance: AMIODARONE
  3. OXYGEN. [Concomitant]
     Active Substance: OXYGEN
     Dosage: 2 L/MIN PRN DURING THE DAY
  4. UPTRAVI [Suspect]
     Active Substance: SELEXIPAG
     Indication: PULMONARY HYPERTENSION
     Dosage: 400 MCG, BID
     Route: 048
  5. LASIX [Concomitant]
     Active Substance: FUROSEMIDE
     Dosage: 40 MG, QD
  6. ELIQUIS [Concomitant]
     Active Substance: APIXABAN
  7. REVATIO [Concomitant]
     Active Substance: SILDENAFIL CITRATE
  8. OXYGEN. [Concomitant]
     Active Substance: OXYGEN
     Dosage: 2 L/MIN AT NIGHT

REACTIONS (7)
  - Rectal haemorrhage [Recovering/Resolving]
  - Haemorrhoids [Unknown]
  - Transfusion [Unknown]
  - Anaemia [Unknown]
  - Syncope [Unknown]
  - Haemorrhoid operation [Unknown]
  - Oedema [Unknown]

NARRATIVE: CASE EVENT DATE: 201901
